FAERS Safety Report 9399281 (Version 1)
Quarter: 2013Q3

REPORT INFORMATION
  Report Type: Spontaneous
  Country: US (occurrence: None)
  Receive Date: 20130709
  Receipt Date: 20130709
  Transmission Date: 20140515
  Serious: Yes (Other)
  Sender: FDA-Public Use
  Company Number: AUR-APL-2013-05715

PATIENT
  Age: 49 Year
  Sex: Female

DRUGS (3)
  1. CITALOPRAM [Suspect]
     Indication: PARKINSON^S DISEASE
     Dosage: (40 MG, 1 IN 1 D)
  2. ROPINIROLE HYDROCHLORIDE [Suspect]
     Indication: PARKINSON^S DISEASE
     Dosage: 4 MG (2 MG, 2 IN 1 D)
  3. SINEMET [Suspect]
     Indication: PARKINSON^S DISEASE
     Dosage: 25/100 ONE TABLET EVERY 3 HR,UNKNOWN

REACTIONS (2)
  - Hypersexuality [None]
  - Parkinsonism [None]
